FAERS Safety Report 20969681 (Version 1)
Quarter: 2022Q2

REPORT INFORMATION
  Report Type: Spontaneous
  Country: None (occurrence: GB)
  Receive Date: 20220616
  Receipt Date: 20220616
  Transmission Date: 20220721
  Serious: Yes (Other)
  Sender: FDA-Public Use
  Company Number: GB-Ascend Therapeutics US, LLC-2129998

PATIENT
  Age: 50 Year
  Sex: Female
  Weight: 48 kg

DRUGS (9)
  1. ESTROGEL [Suspect]
     Active Substance: ESTRADIOL
     Indication: Product used for unknown indication
     Route: 065
     Dates: start: 20211122
  2. ESTROGEL [Suspect]
     Active Substance: ESTRADIOL
  3. ESTRADIOL [Suspect]
     Active Substance: ESTRADIOL
     Route: 065
     Dates: start: 20211122
  4. ESTROGEL [Suspect]
     Active Substance: ESTRADIOL
     Route: 065
     Dates: start: 20220530
  5. PROGESTERONE [Concomitant]
     Active Substance: PROGESTERONE
     Route: 065
     Dates: start: 20211122
  6. EVOREL(ESTRADIOL) [Concomitant]
     Route: 065
     Dates: start: 20220303
  7. HYDROXOCOBALAMIN [Concomitant]
     Active Substance: HYDROXOCOBALAMIN
     Route: 065
     Dates: start: 20211122
  8. LANSOPRAZOLE [Concomitant]
     Active Substance: LANSOPRAZOLE
     Route: 065
     Dates: start: 20220505
  9. VENTOLIN(SALBUTAMOL) [Concomitant]
     Route: 055
     Dates: start: 20211122

REACTIONS (2)
  - Rash [Unknown]
  - Rash vesicular [Unknown]
